FAERS Safety Report 4932961-6 (Version None)
Quarter: 2006Q1

REPORT INFORMATION
  Report Type: 
  Country: None (occurrence: None)
  Receive Date: 20060301
  Receipt Date: 20060301
  Transmission Date: 20060701
  Serious: Yes (Hospitalization)
  Sender: FDA-Public Use
  Company Number: None

PATIENT
  Sex: Male

DRUGS (2)
  1. CISPLATIN [Suspect]
     Indication: PANCREATIC CARCINOMA
     Dosage: IV, {5 MINUTES
     Route: 042
  2. GEMZAR [Concomitant]

REACTIONS (11)
  - ERYTHEMA [None]
  - EYE DISORDER [None]
  - FEELING ABNORMAL [None]
  - FLUSHING [None]
  - INCONTINENCE [None]
  - INFUSION RELATED REACTION [None]
  - MUSCLE RIGIDITY [None]
  - MUSCLE TWITCHING [None]
  - PERIORBITAL OEDEMA [None]
  - THROAT TIGHTNESS [None]
  - UNRESPONSIVE TO VERBAL STIMULI [None]
